FAERS Safety Report 8332788-1 (Version None)
Quarter: 2012Q2

REPORT INFORMATION
  Report Type: 
  Country: None (occurrence: None)
  Receive Date: 20120503
  Receipt Date: 20120426
  Transmission Date: 20120825
  Serious: Yes (Hospitalization, Other)
  Sender: FDA-Public Use
  Company Number: US-AMGEN-USASP2011054269

PATIENT
  Age: 81 Year
  Sex: Male

DRUGS (8)
  1. ASPIRIN [Concomitant]
     Dosage: 325 MG, QD
     Dates: start: 20101101
  2. RITUXIMAB [Concomitant]
     Indication: IDIOPATHIC THROMBOCYTOPENIC PURPURA
     Dosage: 375 MG/M2, QWK
     Route: 042
     Dates: start: 20101008, end: 20101029
  3. LISINOPRIL [Concomitant]
     Dosage: 10 MG, QD
  4. SIMVASTATIN [Concomitant]
     Dosage: 40 MG, QD
  5. BETAXOLOL [Concomitant]
     Dosage: 5 MG, QD
  6. NPLATE [Suspect]
     Indication: IDIOPATHIC THROMBOCYTOPENIC PURPURA
     Dosage: 1 MUG/KG, QWK
     Route: 058
     Dates: start: 20101008, end: 20101111
  7. MULTIVITAMIN                       /00097801/ [Concomitant]
  8. HYDROXYZINE [Concomitant]
     Dosage: 25 MG, PRN

REACTIONS (9)
  - DIVERTICULITIS [None]
  - CHOLECYSTITIS [None]
  - ABDOMINAL ABSCESS [None]
  - PANCREATITIS [None]
  - COLITIS ISCHAEMIC [None]
  - NORMOCHROMIC NORMOCYTIC ANAEMIA [None]
  - PLATELET COUNT INCREASED [None]
  - COLONIC POLYP [None]
  - CONTUSION [None]
